FAERS Safety Report 5874303-8 (Version None)
Quarter: 2008Q3

REPORT INFORMATION
  Report Type: 
  Country: None (occurrence: None)
  Receive Date: 20080908
  Receipt Date: 20080827
  Transmission Date: 20090109
  Serious: Yes (Hospitalization)
  Sender: FDA-Public Use
  Company Number: JP-AMGEN-US306001

PATIENT
  Age: 61 Year
  Sex: Female

DRUGS (13)
  1. ENBREL [Suspect]
     Indication: RHEUMATOID ARTHRITIS
     Route: 058
     Dates: start: 20060101, end: 20080801
  2. BREDININ [Concomitant]
     Route: 048
  3. LOXOPROFEN SODIUM [Concomitant]
     Route: 048
  4. CYTOTEC [Concomitant]
     Route: 048
  5. ALLEGRA [Concomitant]
     Route: 048
  6. PREDNISOLONE [Concomitant]
     Route: 048
  7. HOKUNALIN [Concomitant]
     Route: 061
  8. PULMICORT-100 [Concomitant]
     Route: 055
  9. HALCION [Concomitant]
     Route: 048
  10. ANAFRANIL [Concomitant]
     Dosage: UNSPECIFIED
     Route: 048
  11. PREDONINE [Concomitant]
     Route: 048
  12. NORVASC [Concomitant]
     Route: 048
  13. VARENICLINE TARTRATE [Concomitant]

REACTIONS (2)
  - PNEUMONIA [None]
  - RESPIRATORY FAILURE [None]
